FAERS Safety Report 10455860 (Version 5)
Quarter: 2016Q2

REPORT INFORMATION
  Report Type: Spontaneous
  Country: US (occurrence: US)
  Receive Date: 20140911
  Receipt Date: 20160412
  Transmission Date: 20160902
  Serious: Yes (Other)
  Sender: FDA-Public Use
  Company Number: ADR-2014-00723

PATIENT
  Age: 42 Year
  Sex: Female

DRUGS (8)
  1. BUPIVACAINE. [Suspect]
     Active Substance: BUPIVACAINE
     Dosage: 0.341 MG/BOLUS /4.246 MG/DAY
     Route: 037
  2. FENTANYL. [Suspect]
     Active Substance: FENTANYL
     Route: 037
  3. MORPHINE [Suspect]
     Active Substance: MORPHINE
     Route: 037
  4. BACLOFEN, UNKNOWN [Suspect]
     Active Substance: BACLOFEN
     Indication: PAIN
     Dosage: 29.14 MCG/DAY
     Route: 037
  5. BUPIVACAINE. [Suspect]
     Active Substance: BUPIVACAINE
     Route: 037
  6. FENTANYL. [Suspect]
     Active Substance: FENTANYL
     Dosage: 80.1 MCG/BOLUS/999.1 MCG/DAY
     Route: 037
  7. BACLOFEN, UNKNOWN [Suspect]
     Active Substance: BACLOFEN
     Indication: PAIN
     Dosage: 54.03 MCG/DAY
     Route: 037
  8. MORPHINE, COMPOUNDED [Suspect]
     Active Substance: MORPHINE
     Dosage: 7.285 MG/DAY
     Route: 037

REACTIONS (9)
  - Implant site dehiscence [Unknown]
  - Cerebrospinal fluid leakage [Unknown]
  - Swelling [Unknown]
  - Device damage [Unknown]
  - Pain [Unknown]
  - Peripheral swelling [Unknown]
  - Therapeutic response unexpected [Unknown]
  - Weight increased [Unknown]
  - Post lumbar puncture syndrome [Unknown]

NARRATIVE: CASE EVENT DATE: 20131217
